FAERS Safety Report 5278803-3 (Version None)
Quarter: 2007Q1

REPORT INFORMATION
  Report Type: 
  Country: None (occurrence: None)
  Receive Date: 20061213
  Receipt Date: 20050408
  Transmission Date: 20070707
  Serious: No
  Sender: FDA-Public Use
  Company Number: 2005UW05490

PATIENT

DRUGS (1)
  1. SEROQUEL [Suspect]

REACTIONS (2)
  - ACCIDENTAL OVERDOSE [None]
  - DYSKINESIA [None]
